FAERS Safety Report 7938469-8 (Version None)
Quarter: 2011Q4

REPORT INFORMATION
  Report Type: 
  Country: None (occurrence: None)
  Receive Date: 20111123
  Receipt Date: 20111109
  Transmission Date: 20120403
  Serious: Yes (Death)
  Sender: FDA-Public Use
  Company Number: GB-BAUSCH-2011BL005782

PATIENT
  Age: 92 Year
  Sex: Female
  Weight: 64 kg

DRUGS (16)
  1. LANSOPRAZOLE [Concomitant]
  2. CLOPIDOGREL [Suspect]
     Indication: ATRIAL FIBRILLATION
     Dosage: DOSE UNIT:UNKNOWN
     Route: 065
     Dates: start: 20110505, end: 20110604
  3. DORZOLAMIDE HYDROCHLORIDE [Concomitant]
  4. LATANOPROST [Concomitant]
  5. CLOPIDOGREL [Suspect]
     Indication: CEREBROVASCULAR ACCIDENT PROPHYLAXIS
     Dosage: DOSE UNIT:UNKNOWN
     Route: 065
     Dates: start: 20110505, end: 20110604
  6. CANDESARTAN CILEXETIL [Concomitant]
  7. ZINC OXIDE [Concomitant]
  8. PREDNISOLONE [Suspect]
     Indication: TEMPORAL ARTERITIS
     Route: 065
     Dates: start: 20110517
  9. CALCICHEW D3 /UNK/ [Concomitant]
  10. FUROSEMIDE [Concomitant]
  11. METFORMIN [Concomitant]
  12. ALENDRONIC ACID [Concomitant]
  13. DOUBLEBASE [Concomitant]
  14. PREDNISOLONE [Suspect]
     Route: 065
     Dates: start: 20110101, end: 20110101
  15. FLOXACILLIN SODIUM [Concomitant]
  16. INADINE [Concomitant]

REACTIONS (7)
  - RECTAL HAEMORRHAGE [None]
  - DRUG INTERACTION [None]
  - SYNCOPE [None]
  - VOMITING [None]
  - CIRCULATORY COLLAPSE [None]
  - DUODENAL ULCER HAEMORRHAGE [None]
  - DIZZINESS [None]
